FAERS Safety Report 4829117-4 (Version None)
Quarter: 2005Q4

REPORT INFORMATION
  Report Type: 
  Country: None (occurrence: None)
  Receive Date: 20051116
  Receipt Date: 20050629
  Transmission Date: 20060501
  Serious: Yes (Hospitalization)
  Sender: FDA-Public Use
  Company Number: US-AMGEN-KDL140776

PATIENT
  Sex: Female

DRUGS (3)
  1. ENBREL [Suspect]
     Indication: PSORIATIC ARTHROPATHY
     Route: 058
     Dates: start: 20040215, end: 20050701
  2. ENBREL [Suspect]
     Indication: PSORIASIS
  3. LEXAPRO [Concomitant]

REACTIONS (1)
  - SARCOIDOSIS [None]
